FAERS Safety Report 4876028-4 (Version None)
Quarter: 2005Q4

REPORT INFORMATION
  Report Type: 
  Country: None (occurrence: None)
  Receive Date: 20051206
  Receipt Date: 20051026
  Transmission Date: 20060501
  Serious: No
  Sender: FDA-Public Use
  Company Number: USA0510111923

PATIENT
  Age: 51 Year
  Sex: Male

DRUGS (4)
  1. CYMBALTA [Suspect]
     Indication: DEPRESSION
     Dosage: 60 MG DAY
     Dates: start: 20050915
  2. GLUCOPHAGE [Concomitant]
  3. LISINOPRIL [Concomitant]
  4. TOPROL-XL [Concomitant]

REACTIONS (3)
  - FEELING OF DESPAIR [None]
  - MOOD SWINGS [None]
  - SUICIDAL IDEATION [None]
